FAERS Safety Report 25792951 (Version 2)
Quarter: 2025Q4

REPORT INFORMATION
  Report Type: Spontaneous
  Country: US (occurrence: US)
  Receive Date: 20250911
  Receipt Date: 20251001
  Transmission Date: 20260118
  Serious: No
  Sender: BAUSCH AND LOMB
  Company Number: US-BAUSCH-BH-2025-017346

PATIENT
  Age: 64 Year
  Sex: Male

DRUGS (3)
  1. TRULANCE [Suspect]
     Active Substance: PLECANATIDE
     Indication: Irritable bowel syndrome
     Route: 048
     Dates: start: 2015
  2. TRULANCE [Suspect]
     Active Substance: PLECANATIDE
     Route: 048
     Dates: end: 202509
  3. TRULANCE [Suspect]
     Active Substance: PLECANATIDE
     Route: 048
     Dates: start: 20250820

REACTIONS (3)
  - Drug ineffective [Unknown]
  - Product quality issue [Unknown]
  - No adverse event [Unknown]

NARRATIVE: CASE EVENT DATE: 20250801
